FAERS Safety Report 9699831 (Version 5)
Quarter: 2014Q2

REPORT INFORMATION
  Report Type: Other
  Country: US (occurrence: US)
  Receive Date: 20131120
  Receipt Date: 20140610
  Transmission Date: 20141212
  Serious: Yes (Other)
  Sender: FDA-Public Use
  Company Number: US-RANBAXY-2013US-75385

PATIENT
  Age: 22 Year
  Sex: Female

DRUGS (2)
  1. ABSORICA [Suspect]
     Indication: PRODUCT USED FOR UNKNOWN INDICATION
     Dosage: 40 MG, QD
     Route: 065
     Dates: start: 20130720, end: 20130926
  2. ORTHO TRI-CYCLEN [Concomitant]
     Indication: CONTRACEPTION
     Dosage: UNK
     Route: 065

REACTIONS (5)
  - Exposure during pregnancy [Recovered/Resolved]
  - Ectopic pregnancy [Recovered/Resolved]
  - Abortion induced [Recovered/Resolved]
  - Blood triglycerides increased [Recovered/Resolved]
  - Liver function test abnormal [Recovered/Resolved]
